FAERS Safety Report 10408440 (Version 2)
Quarter: 2014Q3

REPORT INFORMATION
  Report Type: Spontaneous
  Country: FR (occurrence: FR)
  Receive Date: 20140826
  Receipt Date: 20140829
  Transmission Date: 20150326
  Serious: Yes (Hospitalization)
  Sender: FDA-Public Use
  Company Number: FR-ASTRAZENECA-2014SE62966

PATIENT
  Age: 31 Year
  Sex: Male

DRUGS (6)
  1. ACUPAN [Concomitant]
     Active Substance: NEFOPAM HYDROCHLORIDE
  2. INEXIUM [Suspect]
     Active Substance: ESOMEPRAZOLE
     Route: 048
     Dates: end: 20140726
  3. CEFOTAXIME BASE [Suspect]
     Active Substance: CEFOTAXIME\CEFOTAXIME SODIUM
     Indication: ENDOCARDITIS BACTERIAL
     Route: 042
     Dates: start: 20140626, end: 20140728
  4. TAVANIC [Suspect]
     Active Substance: LEVOFLOXACIN
     Indication: ENDOCARDITIS BACTERIAL
     Route: 048
     Dates: start: 20140805, end: 20140805
  5. TAVANIC [Suspect]
     Active Substance: LEVOFLOXACIN
     Indication: ENDOCARDITIS BACTERIAL
     Route: 042
     Dates: start: 20140712, end: 20140804
  6. LOVENOX [Concomitant]
     Active Substance: ENOXAPARIN SODIUM

REACTIONS (1)
  - Neutropenia [Recovered/Resolved]

NARRATIVE: CASE EVENT DATE: 20140728
